FAERS Safety Report 4345078-9 (Version None)
Quarter: 2004Q1

REPORT INFORMATION
  Report Type: 
  Country: None (occurrence: None)
  Receive Date: 20040325
  Receipt Date: 20031126
  Transmission Date: 20041129
  Serious: No
  Sender: FDA-Public Use
  Company Number: USA031253570

PATIENT
  Age: 64 Year
  Sex: Male
  Weight: 76 kg

DRUGS (6)
  1. FORTEO [Suspect]
     Indication: OSTEOPOROSIS
     Dates: start: 20031124
  2. LIBRIUM [Concomitant]
  3. ZOCOR [Concomitant]
  4. PROTONIX [Concomitant]
  5. HYDROCHLOROTHIAZIDE [Concomitant]
  6. TUMS (CALCIUM CARBONATE) [Concomitant]

REACTIONS (2)
  - ASTHENIA [None]
  - FATIGUE [None]
